FAERS Safety Report 26204336 (Version 1)
Quarter: 2025Q4

REPORT INFORMATION
  Report Type: Spontaneous
  Country: GB (occurrence: GB)
  Receive Date: 20251226
  Receipt Date: 20251226
  Transmission Date: 20260118
  Serious: Yes (Hospitalization)
  Sender: FRESENIUS KABI
  Company Number: GB-FreseniusKabi-FK202517716

PATIENT
  Age: 66 Year
  Sex: Female

DRUGS (1)
  1. GEMCITABINE [Suspect]
     Active Substance: GEMCITABINE
     Indication: Pancreatic carcinoma metastatic
     Dosage: CHEMOTHERAPY HAD BEEN DELIVERED OVER 30 MINUTES AS AN INTRAVENOUS INFUSION PERIPHERALLY INSERTED CEN

REACTIONS (1)
  - Atrial tachycardia [Recovered/Resolved]
